FAERS Safety Report 5071874-9 (Version None)
Quarter: 2006Q3

REPORT INFORMATION
  Report Type: 
  Country: None (occurrence: None)
  Receive Date: 20060801
  Receipt Date: 20060714
  Transmission Date: 20061208
  Serious: Yes (Hospitalization, Disabling, Other)
  Sender: FDA-Public Use
  Company Number: US200607002741

PATIENT
  Age: 30 Year
  Sex: Female
  Weight: 170.1 kg

DRUGS (6)
  1. HUMALOG [Suspect]
     Indication: BLOOD GLUCOSE INCREASED
     Dosage: 60 U 3/D; 400 U
     Dates: start: 20040101
  2. HUMULIN R [Suspect]
     Dates: start: 20020101, end: 20040101
  3. HUMULIN R [Suspect]
     Dates: start: 19920101
  4. HUMULIN N [Suspect]
     Dates: start: 20020101, end: 20040101
  5. DIURETICS [Concomitant]
  6. ACTOS [Concomitant]

REACTIONS (23)
  - ABDOMINAL PAIN UPPER [None]
  - BACK PAIN [None]
  - BLISTER INFECTED [None]
  - BLOOD GLUCOSE FLUCTUATION [None]
  - CELLULITIS [None]
  - DECREASED APPETITE [None]
  - DIABETES MELLITUS INADEQUATE CONTROL [None]
  - DRUG EXPOSURE DURING PREGNANCY [None]
  - DYSSTASIA [None]
  - ENURESIS [None]
  - EYE HAEMORRHAGE [None]
  - FLUID RETENTION [None]
  - FUNGAL INFECTION [None]
  - GAIT DISTURBANCE [None]
  - INTERVERTEBRAL DISC DISORDER [None]
  - MIDDLE INSOMNIA [None]
  - NIGHT SWEATS [None]
  - OEDEMA PERIPHERAL [None]
  - PHARMACEUTICAL PRODUCT COMPLAINT [None]
  - PRURITUS [None]
  - SKIN DISCOLOURATION [None]
  - URINARY INCONTINENCE [None]
  - WEIGHT INCREASED [None]
